FAERS Safety Report 13711498 (Version 8)
Quarter: 2018Q1

REPORT INFORMATION
  Report Type: Spontaneous
  Country: CA (occurrence: CA)
  Receive Date: 20170703
  Receipt Date: 20180205
  Transmission Date: 20180508
  Serious: Yes (Other)
  Sender: FDA-Public Use
  Company Number: CA-CELLTRION INC.-2017CA006285

PATIENT

DRUGS (11)
  1. CALCIUM + VITAMIN D                /09279801/ [Concomitant]
     Dosage: UNK
  2. VITAMIN B12 [Concomitant]
     Active Substance: CYANOCOBALAMIN
     Dosage: UNK
     Dates: start: 20170512
  3. LEFLUNOMIDE. [Concomitant]
     Active Substance: LEFLUNOMIDE
     Dosage: 10 MG, DAILY
     Route: 065
  4. INFLECTRA [Suspect]
     Active Substance: INFLIXIMAB-DYYB
     Dosage: 258 MG, EVERY 8 WEEKS
     Route: 042
  5. PANTOPRAZOLE [Concomitant]
     Active Substance: PANTOPRAZOLE
     Dosage: 40 MG, UNK
     Route: 065
  6. INFLECTRA [Suspect]
     Active Substance: INFLIXIMAB-DYYB
     Indication: RHEUMATOID ARTHRITIS
     Dosage: 300 MG, EVERY 0, 2, 6 WEEKS, THEN EVERY 8 WEEKS FOR 12MONTHS
     Route: 042
     Dates: start: 20170510
  7. RISEDRONATE [Concomitant]
     Active Substance: RISEDRONATE SODIUM
     Dosage: ONCE MONTHLY
  8. METFORMIN [Concomitant]
     Active Substance: METFORMIN HYDROCHLORIDE
     Dosage: 500 MG, DAILY
     Route: 065
  9. ELTROXIN [Concomitant]
     Active Substance: LEVOTHYROXINE
     Dosage: UNK
     Dates: start: 20170620
  10. PREDNISONE. [Concomitant]
     Active Substance: PREDNISONE
     Dosage: UNK
     Route: 065
  11. SYNTHROID [Concomitant]
     Active Substance: LEVOTHYROXINE SODIUM
     Dosage: 125 MG, DAILY
     Route: 065

REACTIONS (8)
  - Fatigue [Recovered/Resolved]
  - Incorrect dosage administered [Unknown]
  - Lymphocytosis [Unknown]
  - Weight increased [Unknown]
  - Red cell distribution width increased [Unknown]
  - Drug ineffective [Recovered/Resolved]
  - Blood pressure increased [Unknown]
  - Blood pressure fluctuation [Unknown]

NARRATIVE: CASE EVENT DATE: 20170613
